FAERS Safety Report 8052044-9 (Version None)
Quarter: 2012Q1

REPORT INFORMATION
  Report Type: 
  Country: None (occurrence: None)
  Receive Date: 20120118
  Receipt Date: 20120112
  Transmission Date: 20120608
  Serious: Yes (Other)
  Sender: FDA-Public Use
  Company Number: BR-SANOFI-AVENTIS-2012SA002524

PATIENT
  Age: 74 Year
  Sex: Female
  Weight: 74 kg

DRUGS (5)
  1. APIDRA SOLOSTAR [Suspect]
     Indication: TYPE 2 DIABETES MELLITUS
     Route: 058
     Dates: start: 20110101
  2. JANUMET [Concomitant]
     Route: 048
     Dates: start: 20110901
  3. AMARYL [Concomitant]
     Route: 048
     Dates: start: 20050101, end: 20111201
  4. NPH INSULIN [Concomitant]
     Route: 058
     Dates: start: 20050101
  5. SOLOSTAR [Suspect]
     Indication: DEVICE THERAPY
     Dates: start: 20110101

REACTIONS (3)
  - APHONIA [None]
  - HYPERGLYCAEMIA [None]
  - CAROTID ARTERY DISEASE [None]
